FAERS Safety Report 14790405 (Version 1)
Quarter: 2018Q2

REPORT INFORMATION
  Report Type: Spontaneous
  Country: US (occurrence: US)
  Receive Date: 20180413
  Receipt Date: 20180413
  Transmission Date: 20180711
  Serious: Yes (Hospitalization)
  Sender: FDA-Public Use
  Company Number: None

PATIENT
  Age: 51 Year
  Sex: Female

DRUGS (9)
  1. ONDANSETRON [Concomitant]
     Active Substance: ONDANSETRON
  2. ORENCIA [Suspect]
     Active Substance: ABATACEPT
     Indication: OSTEOARTHRITIS
     Route: 058
     Dates: start: 20170920
  3. LOSARTAN. [Concomitant]
     Active Substance: LOSARTAN
  4. ORENCIA [Suspect]
     Active Substance: ABATACEPT
     Indication: POLYARTHRITIS
     Route: 058
     Dates: start: 20170920
  5. ESTRADIOL. [Concomitant]
     Active Substance: ESTRADIOL
  6. ORENCIA [Suspect]
     Active Substance: ABATACEPT
     Indication: RHEUMATOID ARTHRITIS
     Route: 058
     Dates: start: 20170920
  7. FA [Concomitant]
  8. NABUMETONE. [Concomitant]
     Active Substance: NABUMETONE
  9. MTX [Concomitant]
     Active Substance: METHOTREXATE SODIUM

REACTIONS (1)
  - Drug dose omission [None]

NARRATIVE: CASE EVENT DATE: 2018
